FAERS Safety Report 19026832 (Version 1)
Quarter: 2021Q1

REPORT INFORMATION
  Report Type: Spontaneous
  Country: CH (occurrence: CH)
  Receive Date: 20210318
  Receipt Date: 20210318
  Transmission Date: 20210420
  Serious: Yes (Death, Other)
  Sender: FDA-Public Use
  Company Number: CH-PFIZER INC-2017SE52837

PATIENT
  Age: 75 Year
  Sex: Male
  Weight: 65 kg

DRUGS (28)
  1. CALCIUM ACETATE. [Concomitant]
     Active Substance: CALCIUM ACETATE
     Dosage: UNK, (400 MG)
     Route: 048
  2. CONCOR [Concomitant]
     Active Substance: BISOPROLOL FUMARATE
     Dosage: UNK, (5 MG)
     Route: 048
  3. DAPTOMYCIN. [Suspect]
     Active Substance: DAPTOMYCIN
     Indication: BACTERAEMIA
     Dosage: 850 MG, CYCLIC (EVERY 48 H)
     Route: 042
     Dates: start: 20141206, end: 20141208
  4. TOREM [TORASEMIDE] [Concomitant]
     Active Substance: TORSEMIDE
     Dosage: UNK, (200 MG)
     Route: 048
  5. ZITHROMAX [Concomitant]
     Active Substance: AZITHROMYCIN DIHYDRATE
     Dosage: UNK
  6. VENTOLIN [Concomitant]
     Active Substance: ALBUTEROL SULFATE
     Dosage: UNK
     Route: 055
  7. VFEND [Suspect]
     Active Substance: VORICONAZOLE
     Indication: BRONCHOPULMONARY ASPERGILLOSIS
     Dosage: 250 MG, 2X/DAY (EVERY 12 H)
     Route: 048
     Dates: start: 20141130, end: 20141206
  8. ATORVASTATIN [Concomitant]
     Active Substance: ATORVASTATIN
     Dosage: UNK, (PFIZER 10 MG)
     Route: 048
  9. PRADIF [Concomitant]
     Active Substance: TAMSULOSIN HYDROCHLORIDE
     Dosage: UNK, (400 MCG)
     Route: 048
  10. REMERON [Concomitant]
     Active Substance: MIRTAZAPINE
     Dosage: UNK, (30 MG)
     Route: 048
  11. ROCALTROL [Concomitant]
     Active Substance: CALCITRIOL
     Dosage: UNK, (0.5 MCG)
     Route: 048
  12. SPIRICORT [Concomitant]
     Active Substance: PREDNISOLONE
     Dosage: UNK, (20 MG)
     Route: 048
  13. ZINFORO [Suspect]
     Active Substance: CEFTAROLINE FOSAMIL
     Indication: BACTERAEMIA
     Dosage: 600 MG, CYCLIC (EVERY 24 H IN 2)
     Route: 042
     Dates: start: 20141206, end: 20141208
  14. ZINFORO [Suspect]
     Active Substance: CEFTAROLINE FOSAMIL
     Indication: STAPHYLOCOCCAL SEPSIS
  15. MAGNESIOGARD [Concomitant]
     Dosage: UNK, (GRAN 5 MMOL)
     Route: 048
  16. COZAAR [Concomitant]
     Active Substance: LOSARTAN POTASSIUM
     Dosage: UNK, (50 MG)
     Route: 048
  17. CALCIPARINE [Concomitant]
     Active Substance: HEPARIN CALCIUM
     Dosage: UNK
     Route: 051
  18. COLISTIN [Concomitant]
     Active Substance: COLISTIN
     Dosage: UNK
     Route: 055
  19. TOREMIFENE CITRATE [Concomitant]
     Active Substance: TOREMIFENE CITRATE
  20. DAPTOMYCIN. [Suspect]
     Active Substance: DAPTOMYCIN
     Indication: STAPHYLOCOCCAL SEPSIS
  21. RENAGEL [Concomitant]
     Active Substance: SEVELAMER HYDROCHLORIDE
     Dosage: UNK, (800 MG)
     Route: 048
  22. TACROLIMUS. [Concomitant]
     Active Substance: TACROLIMUS
     Dosage: UNK
     Route: 048
  23. ARANESP [Concomitant]
     Active Substance: DARBEPOETIN ALFA
     Dosage: UNK
     Route: 051
  24. MYFORTIC [Concomitant]
     Active Substance: MYCOPHENOLATE SODIUM
     Dosage: UNK, (360 MG)
     Route: 048
  25. PANTOZOL [Concomitant]
     Active Substance: PANTOPRAZOLE SODIUM
     Dosage: UNK, (40 MG)
     Route: 048
  26. PLAVIX [Concomitant]
     Active Substance: CLOPIDOGREL BISULFATE
     Dosage: UNK, (75 MG)
     Route: 048
  27. ZYLORIC [Concomitant]
     Active Substance: ALLOPURINOL
     Dosage: UNK, (100 MG)
     Route: 048
  28. PARI [Concomitant]
     Dosage: UNK
     Route: 055

REACTIONS (4)
  - Tachyarrhythmia [Fatal]
  - Loss of consciousness [Unknown]
  - Cardiac arrest [Fatal]
  - Hypotension [Unknown]

NARRATIVE: CASE EVENT DATE: 20141208
